FAERS Safety Report 8422526-6 (Version None)
Quarter: 2012Q2

REPORT INFORMATION
  Report Type: 
  Country: None (occurrence: None)
  Receive Date: 20120608
  Receipt Date: 20120528
  Transmission Date: 20120825
  Serious: Yes (Other)
  Sender: FDA-Public Use
  Company Number: GB-WATSON-2012-09722

PATIENT
  Age: 90 Year
  Sex: Female

DRUGS (1)
  1. OXYBUTYNIN [Suspect]
     Indication: PRODUCT USED FOR UNKNOWN INDICATION
     Dosage: UNK
     Route: 062

REACTIONS (3)
  - CONFUSIONAL STATE [None]
  - DRY MOUTH [None]
  - OVERDOSE [None]
